FAERS Safety Report 17261220 (Version 1)
Quarter: 2020Q1

REPORT INFORMATION
  Report Type: Spontaneous
  Country: CZ (occurrence: CZ)
  Receive Date: 20200113
  Receipt Date: 20200113
  Transmission Date: 20200409
  Serious: Yes (Hospitalization, Other)
  Sender: FDA-Public Use
  Company Number: CZ-AUROBINDO-AUR-APL-2019-038805

PATIENT
  Age: 71 Year
  Sex: Female

DRUGS (11)
  1. LAMOTRIGINE. [Suspect]
     Active Substance: LAMOTRIGINE
     Indication: ADJUVANT THERAPY
     Dosage: 25 MILLIGRAM
     Route: 065
  2. ESCITALOPRAM [Suspect]
     Active Substance: ESCITALOPRAM OXALATE
     Indication: ADJUVANT THERAPY
     Dosage: 10 MILLIGRAM
     Route: 065
  3. CITALOPRAM [Concomitant]
     Active Substance: CITALOPRAM HYDROBROMIDE
     Indication: MENTAL DISORDER
     Dosage: 40 MILLIGRAM, UNK
     Route: 065
  4. OLANZAPINE. [Suspect]
     Active Substance: OLANZAPINE
     Indication: MENTAL DISORDER
  5. OXAZEPAM. [Suspect]
     Active Substance: OXAZEPAM
     Indication: ADJUVANT THERAPY
  6. OXAZEPAM. [Suspect]
     Active Substance: OXAZEPAM
     Indication: MENTAL DISORDER
     Dosage: 15 MILLIGRAM
     Route: 065
  7. OLANZAPINE. [Suspect]
     Active Substance: OLANZAPINE
     Indication: PSYCHOTIC DISORDER
  8. OXAZEPAM. [Suspect]
     Active Substance: OXAZEPAM
     Indication: DELUSIONAL DISORDER, UNSPECIFIED TYPE
  9. CITALOPRAM [Concomitant]
     Active Substance: CITALOPRAM HYDROBROMIDE
     Indication: DELUSIONAL DISORDER, UNSPECIFIED TYPE
  10. OLANZAPINE. [Suspect]
     Active Substance: OLANZAPINE
     Indication: DELUSIONAL DISORDER, UNSPECIFIED TYPE
     Dosage: 20 MILLIGRAM, ONCE A DAY
     Route: 065
  11. TRAZODONE [Suspect]
     Active Substance: TRAZODONE HYDROCHLORIDE
     Indication: ADJUVANT THERAPY
     Dosage: 150 MILLIGRAM
     Route: 065

REACTIONS (5)
  - Body mass index increased [Unknown]
  - Sedation [Unknown]
  - Weight increased [Unknown]
  - Deep vein thrombosis [Unknown]
  - Toxicity to various agents [Unknown]
